FAERS Safety Report 6392948-6 (Version None)
Quarter: 2009Q4

REPORT INFORMATION
  Report Type: 
  Country: None (occurrence: None)
  Receive Date: 20091007
  Receipt Date: 20090923
  Transmission Date: 20100525
  Serious: No
  Sender: FDA-Public Use
  Company Number: US-ALLERGAN-0913270US

PATIENT
  Age: 25 Year
  Sex: Female

DRUGS (1)
  1. LATISSE [Suspect]
     Indication: GROWTH OF EYELASHES
     Dosage: 1 GTT, QPM
     Dates: start: 20090914, end: 20090916

REACTIONS (3)
  - BLEPHARITIS [None]
  - ERYTHEMA OF EYELID [None]
  - EYELID IRRITATION [None]
